FAERS Safety Report 6602211-3 (Version None)
Quarter: 2010Q1

REPORT INFORMATION
  Report Type: 
  Country: None (occurrence: None)
  Receive Date: 20100225
  Receipt Date: 20100216
  Transmission Date: 20100710
  Serious: Yes (Other)
  Sender: FDA-Public Use
  Company Number: ES-PFIZER INC-2009282276

PATIENT
  Age: 57 Year
  Sex: Female
  Weight: 78 kg

DRUGS (11)
  1. LYRICA [Suspect]
     Indication: POST HERPETIC NEURALGIA
     Dosage: 75 MG, 2X/DAY
     Route: 048
     Dates: start: 20090827, end: 20090909
  2. EUTIROX [Concomitant]
     Indication: HYPOTHYROIDISM
     Dosage: 150 MG, 1X/DAY
     Route: 048
     Dates: start: 20070412
  3. EZETROL [Concomitant]
     Indication: HYPERLIPIDAEMIA
     Dosage: 10 MG, 1X/DAY
     Route: 048
     Dates: start: 20090603
  4. ZOLPIDEM [Concomitant]
     Indication: INSOMNIA
     Dosage: 10 MG, 1X/DAY
     Route: 048
     Dates: start: 20040930
  5. METAMIZOLE [Concomitant]
     Indication: HERPES VIRUS INFECTION
     Dosage: UNK
     Route: 048
     Dates: start: 20090810, end: 20090814
  6. FLURAZEPAM [Concomitant]
     Indication: INSOMNIA
     Dosage: UNK
     Route: 048
     Dates: start: 20090731
  7. TRAMADOL HYDROCHLORIDE [Concomitant]
     Indication: PAIN
     Dosage: 100 MG, 2X/DAY
     Route: 048
     Dates: start: 20090813
  8. TRAMADOL HYDROCHLORIDE [Concomitant]
     Indication: HERPES VIRUS INFECTION
  9. VALTREX [Concomitant]
     Indication: HERPES VIRUS INFECTION
     Dosage: 1 G, 3X/DAY
     Route: 048
     Dates: start: 20090810, end: 20090816
  10. ACICLOVIR [Concomitant]
     Indication: HERPES VIRUS INFECTION
     Dosage: UNK
     Route: 061
     Dates: start: 20090810
  11. TRAMADOL ^GRUENENTHAL^ [Concomitant]
     Indication: HERPES VIRUS INFECTION
     Dosage: 37.5 MG, 3X/DAY
     Route: 048
     Dates: start: 20090810, end: 20090814

REACTIONS (2)
  - BLOOD THYROID STIMULATING HORMONE INCREASED [None]
  - OEDEMA PERIPHERAL [None]
